FAERS Safety Report 9320010 (Version 1)
Quarter: 2013Q2

REPORT INFORMATION
  Report Type: Spontaneous
  Country: US (occurrence: US)
  Receive Date: 20130530
  Receipt Date: 20130530
  Transmission Date: 20140414
  Serious: No
  Sender: FDA-Public Use
  Company Number: US-UPSHER-SMITH LABORATORIES, INC.-12002741

PATIENT
  Age: 71 Year
  Sex: Female

DRUGS (2)
  1. POTASSIUM CHLORIDE ER [Suspect]
     Indication: HEART RATE IRREGULAR
     Dosage: 10 MEQ, BID
     Route: 048
     Dates: start: 201210
  2. NOT REPORTED [Concomitant]

REACTIONS (1)
  - Medication residue present [Not Recovered/Not Resolved]
